FAERS Safety Report 24164371 (Version 2)
Quarter: 2024Q4

REPORT INFORMATION
  Report Type: Spontaneous
  Country: GR (occurrence: GR)
  Receive Date: 20240801
  Receipt Date: 20241009
  Transmission Date: 20250114
  Serious: Yes (Life-Threatening, Other)
  Sender: ELI LILLY AND CO
  Company Number: GR-SANOFI-02120083

PATIENT
  Age: 57 Year
  Sex: Female

DRUGS (6)
  1. INSULIN LISPRO [Suspect]
     Active Substance: INSULIN LISPRO
     Indication: Diabetes mellitus
     Dosage: UNK UNK, UNKNOWN
     Route: 065
  2. INSULIN GLARGINE [Suspect]
     Active Substance: INSULIN GLARGINE
     Indication: Diabetes mellitus
     Dosage: UNK UNK, UNKNOWN
     Route: 065
     Dates: start: 202404, end: 20240620
  3. VITAMIN D3 [Concomitant]
     Active Substance: CHOLECALCIFEROL
     Indication: Product used for unknown indication
     Dosage: UNK
  4. HYDREASYN [Concomitant]
     Indication: Product used for unknown indication
     Dosage: UNK
  5. AMLODIPINE BESYLATE\OLMESARTAN MEDOXOMIL [Concomitant]
     Active Substance: AMLODIPINE BESYLATE\OLMESARTAN MEDOXOMIL
     Indication: Blood pressure measurement
     Dosage: UNK
  6. LIPTRUZET [Concomitant]
     Active Substance: ATORVASTATIN CALCIUM\EZETIMIBE
     Indication: Product used for unknown indication
     Dosage: UNK

REACTIONS (10)
  - Blood glucose fluctuation [Recovered/Resolved]
  - Depressed level of consciousness [Recovered/Resolved]
  - Lipodystrophy acquired [Unknown]
  - Injection site pruritus [Unknown]
  - Injection site granuloma [Not Recovered/Not Resolved]
  - Irritability [Recovered/Resolved]
  - Contusion [Unknown]
  - Injection site irritation [Unknown]
  - Injection site induration [Unknown]
  - Peripheral swelling [Unknown]

NARRATIVE: CASE EVENT DATE: 20240101
